FAERS Safety Report 12798501 (Version 2)
Quarter: 2016Q4

REPORT INFORMATION
  Report Type: Spontaneous
  Country: US (occurrence: US)
  Receive Date: 20160930
  Receipt Date: 20161103
  Transmission Date: 20170207
  Serious: No
  Sender: FDA-Public Use
  Company Number: US-PFIZER INC-2016451933

PATIENT
  Age: 51 Year
  Sex: Male
  Weight: 118 kg

DRUGS (3)
  1. SYNTHROID [Concomitant]
     Active Substance: LEVOTHYROXINE SODIUM
     Indication: THYROID DISORDER
     Dosage: ONE TABLET DAILY
     Route: 048
     Dates: start: 20000110
  2. ACCURETIC [Suspect]
     Active Substance: HYDROCHLOROTHIAZIDE\QUINAPRIL HYDROCHLORIDE
     Dosage: 1 DF, 1X/DAY [QUINAPRIL: 10MG]/[HYDROCHLOROTHIAZIDE: 12.5MG] TAB 1 A DAY
     Route: 048
     Dates: start: 20160830
  3. ACCURETIC [Suspect]
     Active Substance: HYDROCHLOROTHIAZIDE\QUINAPRIL HYDROCHLORIDE
     Indication: HYPERTENSION
     Dosage: [QUINAPRIL 10MG]/ [HYDROCHLOROTHIAZIDE 12.5MG] ONE TABLET DAILY
     Route: 048
     Dates: start: 201609, end: 201609

REACTIONS (5)
  - Acne [Recovered/Resolved]
  - Vision blurred [Recovered/Resolved]
  - Fungal infection [Recovered/Resolved]
  - Urticaria [Recovered/Resolved]
  - Scar [Recovered/Resolved]

NARRATIVE: CASE EVENT DATE: 201609
